FAERS Safety Report 4961729-X (Version None)
Quarter: 2006Q2

REPORT INFORMATION
  Report Type: 
  Country: None (occurrence: None)
  Receive Date: 20060404
  Receipt Date: 20060324
  Transmission Date: 20061013
  Serious: Yes (Hospitalization)
  Sender: FDA-Public Use
  Company Number: PHHO2006CL04904

PATIENT
  Age: 12 Month
  Sex: Male
  Weight: 9.82 kg

DRUGS (2)
  1. ASM 981 VS CONTROL VEHICLE [Suspect]
     Indication: DERMATITIS ATOPIC
     Dosage: TWICE DAILY
     Route: 061
  2. CLOZAPINE [Suspect]
     Dosage: 100 MG, ONCE/SINGLE

REACTIONS (5)
  - ACCIDENTAL DRUG INTAKE BY CHILD [None]
  - DRUG TOXICITY [None]
  - IRRITABILITY [None]
  - SOMNOLENCE [None]
  - TREMOR [None]
